FAERS Safety Report 7154264 (Version 3)
Quarter: 2013Q1

REPORT INFORMATION
  Report Type: Spontaneous
  Country: US (occurrence: US)
  Receive Date: 20091021
  Receipt Date: 20130329
  Transmission Date: 20140127
  Serious: Yes (Other)
  Sender: FDA-Public Use
  Company Number: US-ASTRAZENECA-2009SE19697

PATIENT
  Age: 84 Year
  Sex: Female
  Weight: 53.5 kg

DRUGS (9)
  1. NEXIUM [Suspect]
     Route: 048
     Dates: start: 2004
  2. CRESTOR [Suspect]
     Route: 048
  3. PLAVIX [Concomitant]
  4. LISINOPRIL [Concomitant]
  5. ATENOLOL [Concomitant]
  6. CELEBREX [Concomitant]
  7. ISOSORBIDE [Concomitant]
  8. OXYBUTYNIN [Concomitant]
  9. ALENDRONATE [Concomitant]

REACTIONS (8)
  - Angina pectoris [Recovered/Resolved]
  - Cataract [Unknown]
  - Coronary artery stenosis [Unknown]
  - Device failure [Unknown]
  - Arthritis [Unknown]
  - Body height decreased [Unknown]
  - Oesophageal disorder [Unknown]
  - Drug prescribing error [Unknown]
